FAERS Safety Report 7088209-2 (Version None)
Quarter: 2010Q4

REPORT INFORMATION
  Report Type: 
  Country: None (occurrence: None)
  Receive Date: 20101108
  Receipt Date: 20100420
  Transmission Date: 20110411
  Serious: Yes (Hospitalization)
  Sender: FDA-Public Use
  Company Number: US-BAYER-201014287NA

PATIENT
  Age: 47 Year
  Sex: Female
  Weight: 89 kg

DRUGS (4)
  1. YAZ [Suspect]
     Indication: ORAL CONTRACEPTION
     Route: 048
     Dates: start: 20070901, end: 20080101
  2. ALEVE (CAPLET) [Concomitant]
  3. SYNTHROID [Concomitant]
     Indication: HYPOTHYROIDISM
  4. CYTOMEL [Concomitant]

REACTIONS (12)
  - BLINDNESS UNILATERAL [None]
  - CONJUNCTIVAL HAEMORRHAGE [None]
  - EYE PAIN [None]
  - EYE PRURITUS [None]
  - IMPAIRED DRIVING ABILITY [None]
  - IMPAIRED WORK ABILITY [None]
  - OPTIC ATROPHY [None]
  - PAPILLOEDEMA [None]
  - PHOTOPSIA [None]
  - PUPILLARY REFLEX IMPAIRED [None]
  - RETINAL ARTERY OCCLUSION [None]
  - VISUAL FIELD DEFECT [None]
